FAERS Safety Report 8809051 (Version 1)
Quarter: 2012Q4

REPORT INFORMATION
  Report Type: 
  Country: US (occurrence: US)
  Receive Date: 20120926
  Receipt Date: 20120926
  Transmission Date: 20130627
  Serious: No
  Sender: FDA-Public Use
  Company Number: US-PFIZER INC-2012235059

PATIENT
  Sex: Female

DRUGS (1)
  1. ESTRING [Suspect]
     Indication: URINARY TRACT INFECTION
     Dosage: 2 mg, every 3 months
     Route: 067
     Dates: start: 201112, end: 201112

REACTIONS (3)
  - Off label use [Unknown]
  - Drug ineffective for unapproved indication [Unknown]
  - Product quality issue [Unknown]
